FAERS Safety Report 6282758-2 (Version None)
Quarter: 2009Q3

REPORT INFORMATION
  Report Type: 
  Country: None (occurrence: None)
  Receive Date: 20090724
  Receipt Date: 20090713
  Transmission Date: 20100115
  Serious: Yes (Other)
  Sender: FDA-Public Use
  Company Number: ES-WATSON-2009-05621

PATIENT
  Age: 69 Year
  Sex: Female

DRUGS (1)
  1. AFEDITAB (WATSON LABORATORIES) [Suspect]
     Indication: HYPERTENSION
     Dosage: UNK

REACTIONS (2)
  - ACUTE GENERALISED EXANTHEMATOUS PUSTULOSIS [None]
  - PYREXIA [None]
